FAERS Safety Report 11132958 (Version 1)
Quarter: 2015Q2

REPORT INFORMATION
  Report Type: Report from Study
  Country: DE (occurrence: DE)
  Receive Date: 20150522
  Receipt Date: 20150522
  Transmission Date: 20150821
  Serious: Yes (Other)
  Sender: FDA-Public Use
  Company Number: DE-BAYER-2015-258783

PATIENT
  Age: 48 Year
  Sex: Male
  Weight: 105 kg

DRUGS (6)
  1. GADOXETIC ACID DISODIUM [Suspect]
     Active Substance: GADOXETATE DISODIUM
     Indication: SCAN WITH CONTRAST
     Dosage: 10 ML, UNK
     Route: 042
     Dates: start: 20150315, end: 20150315
  2. FENTANYL. [Concomitant]
     Active Substance: FENTANYL
     Indication: PAIN
     Dosage: 75 DERMAL EVERY 3 DAYS
     Route: 061
  3. OBSIDAN [PROPRANOLOL HYDROCHLORIDE] [Concomitant]
     Indication: HYPERTENSION
     Dosage: 25 MG, BID
     Route: 048
  4. NEXIUM [Concomitant]
     Active Substance: ESOMEPRAZOLE MAGNESIUM
     Indication: GASTROOESOPHAGEAL REFLUX DISEASE
     Dosage: 40 MG, QD
     Route: 048
  5. FUROBETA [Concomitant]
     Indication: HYPERTENSION
     Dosage: 40 MG, QD
     Route: 048
  6. SPIRONOLACTON [Concomitant]
     Active Substance: SPIRONOLACTONE
     Indication: HYPERTENSION
     Dosage: 25 MG, QD
     Route: 048

REACTIONS (1)
  - Nephrogenic systemic fibrosis [None]

NARRATIVE: CASE EVENT DATE: 201503
